FAERS Safety Report 23805008 (Version 1)
Quarter: 2024Q2

REPORT INFORMATION
  Report Type: Report from Study
  Country: US (occurrence: US)
  Receive Date: 20240502
  Receipt Date: 20240502
  Transmission Date: 20240716
  Serious: Yes (Other)
  Sender: FDA-Public Use
  Company Number: US-ABBVIE-5738620

PATIENT
  Age: 67 Year
  Sex: Male

DRUGS (1)
  1. SKYRIZI [Suspect]
     Active Substance: RISANKIZUMAB-RZAA
     Indication: Crohn^s disease
     Route: 058

REACTIONS (5)
  - Non-Hodgkin^s lymphoma [Unknown]
  - Fatigue [Unknown]
  - Somnolence [Unknown]
  - Crohn^s disease [Unknown]
  - Arthralgia [Unknown]

NARRATIVE: CASE EVENT DATE: 20240427
